FAERS Safety Report 8239975-1 (Version None)
Quarter: 2012Q1

REPORT INFORMATION
  Report Type: 
  Country: None (occurrence: None)
  Receive Date: 20120328
  Receipt Date: 20120321
  Transmission Date: 20120608
  Serious: Yes (Other)
  Sender: FDA-Public Use
  Company Number: US-BAYER-2012-028777

PATIENT
  Age: 31 Year
  Sex: Female
  Weight: 115.19 kg

DRUGS (6)
  1. MOTRIN [Concomitant]
     Dosage: 600 MG, TID
  2. IBUPROFEN (ADVIL) [Concomitant]
  3. YAZ [Suspect]
     Dosage: UNK
  4. NYQUIL [Concomitant]
  5. BACTRIM [Concomitant]
     Indication: ACUTE SINUSITIS
     Dosage: UNK UNK, BID
  6. LOESTRIN 1.5/30 [Concomitant]
     Indication: CONTRACEPTION

REACTIONS (1)
  - DEEP VEIN THROMBOSIS [None]
